FAERS Safety Report 9420308 (Version 1)
Quarter: 2013Q3

REPORT INFORMATION
  Report Type: Spontaneous
  Country: US (occurrence: US)
  Receive Date: 20130725
  Receipt Date: 20130725
  Transmission Date: 20140515
  Serious: No
  Sender: FDA-Public Use
  Company Number: US-ABBOTT-13P-163-1033414-00

PATIENT
  Age: 90 Year
  Sex: Female
  Weight: 54.03 kg

DRUGS (6)
  1. SYNTHROID [Suspect]
     Indication: HYPOTHYROIDISM
     Dates: start: 20130105
  2. NEXIUM [Concomitant]
     Indication: GASTROINTESTINAL DISORDER
  3. DILANTIN [Concomitant]
     Indication: BALANCE DISORDER
  4. VITAMINS [Concomitant]
     Indication: VITAMIN SUPPLEMENTATION
  5. GABAPENTIN [Concomitant]
     Indication: PAIN IN EXTREMITY
  6. NITROGLYCERIN [Concomitant]
     Indication: PRODUCT USED FOR UNKNOWN INDICATION

REACTIONS (6)
  - Rhinorrhoea [Not Recovered/Not Resolved]
  - Dizziness [Not Recovered/Not Resolved]
  - Choking sensation [Not Recovered/Not Resolved]
  - Chest pain [Not Recovered/Not Resolved]
  - Headache [Not Recovered/Not Resolved]
  - Asthenia [Not Recovered/Not Resolved]
